FAERS Safety Report 12205083 (Version 1)
Quarter: 2016Q1

REPORT INFORMATION
  Report Type: Report from Study
  Country: DE (occurrence: DE)
  Receive Date: 20160323
  Receipt Date: 20160323
  Transmission Date: 20160526
  Serious: Yes (Hospitalization)
  Sender: FDA-Public Use
  Company Number: DE-TEVA-643980GER

PATIENT
  Age: 55 Year
  Sex: Female
  Weight: 50 kg

DRUGS (10)
  1. PACLITAXEL. [Suspect]
     Active Substance: PACLITAXEL
     Indication: BREAST CANCER FEMALE
     Dosage: DATE OF LAST DOSE PRIOR SAE: 25-FEB-2016
     Route: 042
     Dates: start: 20151120, end: 20160225
  2. ALOXI [Concomitant]
     Active Substance: PALONOSETRON HYDROCHLORIDE
     Dosage: 250 MICROGRAM IV TREATMENT ON DAY 1
     Route: 042
  3. RANITIDIN [Concomitant]
     Active Substance: RANITIDINE HYDROCHLORIDE
     Dosage: 50 MG IV ON TREATMENT DAY 1
     Route: 042
  4. TRASTUZUMAB [Suspect]
     Active Substance: TRASTUZUMAB
     Indication: BREAST CANCER FEMALE
     Dosage: DATE OF LAST DOSE PRIOR SAE: 16-FEB-2016, TEMPORARILY INTERRUPTED 16-FEB-2016
     Route: 042
     Dates: start: 20151120, end: 20160216
  5. ESOMEPRAZOL [Concomitant]
     Active Substance: ESOMEPRAZOLE
     Dosage: 40 MILLIGRAM DAILY;
  6. MYOCET [Suspect]
     Active Substance: DOXORUBICIN
     Indication: BREAST CANCER FEMALE
     Dosage: DATE OF LAST DOSE PRIOR SAE: 25-FEB-2016
     Route: 042
     Dates: start: 20151120, end: 20160216
  7. EMEND [Concomitant]
     Active Substance: APREPITANT
     Dosage: 150 MG IV ON TREATMENT DAY 1
     Route: 042
  8. PERTUZUMAB [Suspect]
     Active Substance: PERTUZUMAB
     Indication: BREAST CANCER FEMALE
     Dosage: DATE OF LAST DOSE PRIOR SAE: 16-FEB-2016
     Route: 042
     Dates: start: 20151120, end: 20160216
  9. DEXAMETHASONE. [Concomitant]
     Active Substance: DEXAMETHASONE
     Dosage: 28 MILLIGRAM DAILY; 12-8-8 MG PER OS ON TREATMENT DAYS 1-3
     Route: 048
  10. CLEMASTIN [Concomitant]
     Active Substance: CLEMASTINE
     Dosage: 2 MG IV ON TREATMENT DAY 1
     Route: 042

REACTIONS (1)
  - Pneumonitis [Not Recovered/Not Resolved]

NARRATIVE: CASE EVENT DATE: 20160308
